FAERS Safety Report 6888509-2 (Version None)
Quarter: 2010Q3

REPORT INFORMATION
  Report Type: 
  Country: None (occurrence: None)
  Receive Date: 20100730
  Receipt Date: 20100719
  Transmission Date: 20110219
  Serious: No
  Sender: FDA-Public Use
  Company Number: PHHY2010FR44258

PATIENT
  Age: 77 Year
  Sex: Female
  Weight: 47 kg

DRUGS (4)
  1. ACLASTA [Suspect]
     Indication: OSTEOPOROSIS
     Dosage: UNK
     Dates: start: 20100430
  2. BENZODIAZEPINES [Concomitant]
  3. CALCIUM WITH VITAMIN D [Concomitant]
     Indication: OSTEOPOROSIS
     Dosage: 2 DF DAILY
  4. NISIS [Concomitant]
     Indication: HYPERTENSION
     Dosage: 1 DF DAILY

REACTIONS (2)
  - DYSAESTHESIA [None]
  - PAIN IN EXTREMITY [None]
